FAERS Safety Report 18605695 (Version 2)
Quarter: 2021Q2

REPORT INFORMATION
  Report Type: Report from Study
  Country: ES (occurrence: ES)
  Receive Date: 20201211
  Receipt Date: 20210607
  Transmission Date: 20210717
  Serious: Yes (Life-Threatening, Hospitalization, Other)
  Sender: FDA-Public Use
  Company Number: ES-TAKEDA-ES202029159

PATIENT
  Age: 1 Year
  Sex: Male

DRUGS (13)
  1. LEVOTHYROXINE. [Concomitant]
     Active Substance: LEVOTHYROXINE
     Indication: HORMONE LEVEL ABNORMAL
     Dosage: 31.25 MICROGRAM, QD
     Route: 048
     Dates: start: 20190717
  2. URSODEOXYCHOLIC ACID [Concomitant]
     Active Substance: URSODIOL
     Indication: LIVER DISORDER
     Dosage: 30 MILLIGRAM, TID
     Route: 048
     Dates: start: 20190110, end: 20200924
  3. BEMIPARIN [Concomitant]
     Active Substance: BEMIPARIN
     Indication: THROMBOSIS
     Dosage: 1500 INTERNATIONAL UNIT, QD
     Route: 058
     Dates: start: 20200305
  4. TEDUGLUTIDE [Suspect]
     Active Substance: TEDUGLUTIDE
     Indication: SHORT-BOWEL SYNDROME
     Dosage: 0.32 MILLIGRAM (0.05 MILLIGRAM/KILOGRAM DAILY DOSE), 7 DOSES PER WEEK
     Route: 065
     Dates: start: 20200513
  5. TEDUGLUTIDE [Suspect]
     Active Substance: TEDUGLUTIDE
     Dosage: 0.050 INTERNATIONAL UNIT, QD
     Route: 065
     Dates: start: 20200513
  6. VITAMIN K [Concomitant]
     Active Substance: PHYTONADIONE
     Dosage: 5 MILLIGRAM, QD
     Route: 042
     Dates: start: 20190811
  7. TEDUGLUTIDE [Suspect]
     Active Substance: TEDUGLUTIDE
     Indication: SHORT-BOWEL SYNDROME
     Dosage: 0.32 MILLIGRAM (0.05 MILLIGRAM/KILOGRAM DAILY DOSE), 7 DOSES PER WEEK
     Route: 065
     Dates: start: 20200513
  8. LOPERAMIDE [Concomitant]
     Active Substance: LOPERAMIDE
     Indication: PRODUCT USED FOR UNKNOWN INDICATION
  9. TEDUGLUTIDE [Suspect]
     Active Substance: TEDUGLUTIDE
     Indication: SHORT-BOWEL SYNDROME
     Dosage: 0.32 MILLIGRAM (0.05 MILLIGRAM/KILOGRAM DAILY DOSE), 7 DOSES PER WEEK
     Route: 065
     Dates: start: 20200513
  10. TEDUGLUTIDE [Suspect]
     Active Substance: TEDUGLUTIDE
     Dosage: 0.050 INTERNATIONAL UNIT, QD
     Route: 065
     Dates: start: 20200513
  11. TEDUGLUTIDE [Suspect]
     Active Substance: TEDUGLUTIDE
     Indication: SHORT-BOWEL SYNDROME
     Dosage: 0.32 MILLIGRAM (0.05 MILLIGRAM/KILOGRAM DAILY DOSE), 7 DOSES PER WEEK
     Route: 065
     Dates: start: 20200513
  12. TEDUGLUTIDE [Suspect]
     Active Substance: TEDUGLUTIDE
     Dosage: 0.050 INTERNATIONAL UNIT, QD
     Route: 065
     Dates: start: 20200513
  13. TEDUGLUTIDE [Suspect]
     Active Substance: TEDUGLUTIDE
     Dosage: 0.050 INTERNATIONAL UNIT, QD
     Route: 065
     Dates: start: 20200513

REACTIONS (4)
  - Device related infection [Not Recovered/Not Resolved]
  - Device related thrombosis [Recovered/Resolved]
  - Administration site extravasation [Recovered/Resolved]
  - Central venous catheter removal [Recovered/Resolved]

NARRATIVE: CASE EVENT DATE: 20200528
